FAERS Safety Report 8523077 (Version 5)
Quarter: 2012Q4

REPORT INFORMATION
  Report Type: 
  Country: CA (occurrence: CA)
  Receive Date: 20120420
  Receipt Date: 20121228
  Transmission Date: 20130627
  Serious: Yes (Hospitalization, Other)
  Sender: FDA-Public Use
  Company Number: CA-JNJFOC-20120406347

PATIENT
  Age: 45 Year
  Sex: Female
  Weight: 52 kg

DRUGS (3)
  1. REMICADE [Suspect]
     Indication: PSORIATIC ARTHROPATHY
     Route: 042
     Dates: start: 20120215
  2. METHOTREXATE [Concomitant]
     Route: 058
  3. CELEBREX [Concomitant]
     Route: 065

REACTIONS (6)
  - Cholelithiasis [Recovered/Resolved]
  - Arthritis [Unknown]
  - Hot flush [Unknown]
  - Dyspepsia [Unknown]
  - Hypoaesthesia [Unknown]
  - Nasopharyngitis [Recovered/Resolved]
